FAERS Safety Report 25503269 (Version 2)
Quarter: 2025Q3

REPORT INFORMATION
  Report Type: Report from Study
  Country: KR (occurrence: KR)
  Receive Date: 20250702
  Receipt Date: 20250728
  Transmission Date: 20251021
  Serious: Yes (Hospitalization)
  Sender: SUNOVION
  Company Number: KR-BIAL-BIAL-19233

PATIENT

DRUGS (18)
  1. ESLICARBAZEPINE ACETATE [Suspect]
     Active Substance: ESLICARBAZEPINE ACETATE
     Indication: Epilepsy
     Dosage: 400 MILLIGRAM, DAILY
     Route: 048
     Dates: start: 20231206, end: 20240208
  2. AGOMELATINE [Concomitant]
     Active Substance: AGOMELATINE
     Indication: Depression
     Dosage: 1 DOSAGE FORM, DAILY
     Route: 048
     Dates: start: 20210825
  3. Myungin acamprosate [Concomitant]
     Indication: Depression
     Dosage: 2 DOSAGE FORM, DAILY
     Route: 048
     Dates: start: 20190125
  4. REVIA [Concomitant]
     Active Substance: NALTREXONE HYDROCHLORIDE
     Indication: Depression
     Dosage: 1 DOSAGE FORM, DAILY
     Route: 048
     Dates: start: 20210917
  5. ZYPREXA ZYDIS [Concomitant]
     Active Substance: OLANZAPINE
     Indication: Depression
     Dosage: 1 DOSAGE FORM, DAILY
     Route: 048
     Dates: start: 20220413
  6. Whanin clonazepam [Concomitant]
     Indication: Depression
     Dosage: 1 DOSAGE FORM, DAILY
     Route: 048
     Dates: start: 20220504
  7. SEROQUEL [Concomitant]
     Active Substance: QUETIAPINE FUMARATE
     Indication: Depression
     Dosage: 2 DOSAGE FORM, DAILY
     Route: 048
     Dates: start: 20190830
  8. TRAZODONE HYDROCHLORIDE [Concomitant]
     Active Substance: TRAZODONE HYDROCHLORIDE
     Indication: Depression
     Dosage: 2 DOSAGE FORM, DAILY
     Route: 048
     Dates: start: 20170222
  9. SILENOR [Concomitant]
     Active Substance: DOXEPIN HYDROCHLORIDE
     Indication: Depression
     Route: 048
     Dates: start: 20200106
  10. BENZTROPINE [Concomitant]
     Active Substance: BENZTROPINE
     Indication: Depression
     Dosage: 1.5 DOSAGE FORM / 0.5 D
     Route: 048
     Dates: start: 20210917
  11. Lodopin [Concomitant]
     Indication: Depression
     Dosage: 2 DOSAGE FORM, DAILY
     Route: 048
     Dates: start: 20210908
  12. TRAZODONE HYDROCHLORIDE [Concomitant]
     Active Substance: TRAZODONE HYDROCHLORIDE
     Indication: Depression
     Dosage: 1 DOSAGE FORM, DAILY
     Route: 048
     Dates: start: 20230828
  13. Myungin lithium carbonate [Concomitant]
     Indication: Depression
     Dosage: 0.5 DOSAGE FORM / 0.5 D
     Route: 048
     Dates: start: 20230906
  14. PROPRANOLOL HYDROCHLORIDE [Concomitant]
     Active Substance: PROPRANOLOL HYDROCHLORIDE
     Indication: Behaviour disorder
     Dosage: 1 DOSAGE FORM/ 0.5 D
     Route: 048
     Dates: start: 20230915
  15. XANAX [Concomitant]
     Active Substance: ALPRAZOLAM
     Indication: Depression
     Route: 048
     Dates: start: 20230915
  16. ATIVAN [Concomitant]
     Active Substance: LORAZEPAM
     Indication: Depression
     Dosage: 1 DOSAGE FORM, DAILY
     Route: 048
     Dates: start: 20230524
  17. LAMICTAL [Concomitant]
     Active Substance: LAMOTRIGINE
     Indication: Depression
     Dosage: 0.5 DOSAGE FORM, BID
     Route: 048
     Dates: start: 20230814
  18. Lodopin [Concomitant]
     Indication: Depression
     Dosage: 1 DOSAGE FORM, DAILY
     Route: 048
     Dates: start: 20220608

REACTIONS (3)
  - Seizure [Recovered/Resolved]
  - Underdose [Unknown]
  - Drug dose titration not performed [Unknown]

NARRATIVE: CASE EVENT DATE: 20240208
